FAERS Safety Report 4316644-1 (Version None)
Quarter: 2004Q1

REPORT INFORMATION
  Report Type: 
  Country: None (occurrence: None)
  Receive Date: 20040311
  Receipt Date: 20040228
  Transmission Date: 20041129
  Serious: Yes (Death, Other)
  Sender: FDA-Public Use
  Company Number: 2004008388

PATIENT
  Age: 75 Year
  Sex: Male

DRUGS (7)
  1. TIKOSYN [Suspect]
     Indication: VENTRICULAR TACHYCARDIA
     Dosage: 500 MCG (BID), ORAL
     Route: 048
     Dates: start: 20031201, end: 20040201
  2. OTHER RESPIRATORY SYSTEM PRODUCTS [Concomitant]
  3. LORAZEPAM [Concomitant]
  4. PAROXETINE HCL [Concomitant]
  5. ANTIEMETICS AND ANTINAUSEANTS [Concomitant]
  6. HALOPERIDOL [Concomitant]
  7. ALL OTHER THERAPEUTIC PRODUCTS [Concomitant]

REACTIONS (5)
  - DECREASED APPETITE [None]
  - FEELING ABNORMAL [None]
  - NAUSEA [None]
  - VOMITING [None]
  - WEIGHT DECREASED [None]
